FAERS Safety Report 9272144 (Version 2)
Quarter: 2013Q2

REPORT INFORMATION
  Report Type: Spontaneous
  Country: US (occurrence: US)
  Receive Date: 20130506
  Receipt Date: 20130527
  Transmission Date: 20140414
  Serious: Yes (Other)
  Sender: FDA-Public Use
  Company Number: US-PFIZER INC-2013112353

PATIENT
  Age: 54 Year
  Sex: Female

DRUGS (3)
  1. XALATAN [Suspect]
     Indication: GLAUCOMA
     Dosage: 1 GTT,  OU QHS
     Route: 047
     Dates: start: 2007
  2. BUSPIRONE HYDROCHLORIDE [Concomitant]
     Dosage: UNK
  3. CLONAZEPAM [Concomitant]
     Dosage: UNK

REACTIONS (5)
  - Macular fibrosis [Unknown]
  - Visual acuity reduced [Unknown]
  - Vision blurred [Unknown]
  - Glare [Unknown]
  - Photophobia [Unknown]
